FAERS Safety Report 24103611 (Version 1)
Quarter: 2024Q3

REPORT INFORMATION
  Report Type: Spontaneous
  Country: PL (occurrence: PL)
  Receive Date: 20240717
  Receipt Date: 20240717
  Transmission Date: 20241016
  Serious: Yes (Hospitalization)
  Sender: ROCHE
  Company Number: PL-002147023-NVSC2020PL274539

PATIENT
  Age: 69 Year
  Sex: Female

DRUGS (3)
  1. RITUXIMAB [Suspect]
     Active Substance: RITUXIMAB
     Indication: Systemic lupus erythematosus
     Dosage: SINCE 2 MONTHS, DUE TO DISEASE EXACERBATION
     Route: 065
     Dates: start: 2020
  2. METAMIZOLE [Suspect]
     Active Substance: METAMIZOLE
     Indication: Myalgia
     Dosage: SINCE 3 DAYS, WITHOUT CONSULTING HER DOCTOR
     Route: 065
  3. METAMIZOLE [Suspect]
     Active Substance: METAMIZOLE
     Indication: Headache

REACTIONS (4)
  - Neutropenia [Recovering/Resolving]
  - Off label use [Unknown]
  - Agranulocytosis [Unknown]
  - Leukopenia [Unknown]

NARRATIVE: CASE EVENT DATE: 20200301
